FAERS Safety Report 15763911 (Version 2)
Quarter: 2019Q1

REPORT INFORMATION
  Report Type: Spontaneous
  Country: DE (occurrence: DE)
  Receive Date: 20181227
  Receipt Date: 20190131
  Transmission Date: 20190417
  Serious: Yes (Other)
  Sender: FDA-Public Use
  Company Number: DE-TEVA-2018-DE-991110

PATIENT
  Age: 27 Year
  Sex: Female
  Weight: 94 kg

DRUGS (3)
  1. DOXEPIN [Suspect]
     Active Substance: DOXEPIN
     Indication: DEPRESSION
     Route: 048
     Dates: start: 20181114
  2. DOXEPIN [Suspect]
     Active Substance: DOXEPIN
     Route: 048
     Dates: start: 20180511
  3. DOXEPIN [Suspect]
     Active Substance: DOXEPIN
     Dosage: FOR 9 YEARS, 37.5 MG, REDUCED IN 2.5 MG INCREMENTS, CURRENTLY ON LEVELING
     Route: 048
     Dates: start: 20090408

REACTIONS (8)
  - Photophobia [Recovering/Resolving]
  - Eye pain [Recovered/Resolved]
  - Tinnitus [Unknown]
  - Foreign body sensation in eyes [Recovering/Resolving]
  - Insomnia [Unknown]
  - Papilloedema [Recovered/Resolved]
  - Headache [Unknown]
  - Restlessness [Unknown]

NARRATIVE: CASE EVENT DATE: 2018
